FAERS Safety Report 23376474 (Version 2)
Quarter: 2024Q4

REPORT INFORMATION
  Report Type: Spontaneous
  Country: US (occurrence: US)
  Receive Date: 20240108
  Receipt Date: 20241224
  Transmission Date: 20250115
  Serious: Yes (Other)
  Sender: CHIESI
  Company Number: US-CHIESI-2023CHF04520

PATIENT

DRUGS (1)
  1. CUROSURF [Suspect]
     Active Substance: PORACTANT ALFA
     Indication: Product used for unknown indication
     Dosage: UNK
     Route: 007

REACTIONS (2)
  - Pulmonary haemorrhage [Unknown]
  - Neonatal hypotension [Unknown]
